FAERS Safety Report 5275438-3 (Version None)
Quarter: 2007Q1

REPORT INFORMATION
  Report Type: 
  Country: None (occurrence: None)
  Receive Date: 20070322
  Receipt Date: 20070322
  Transmission Date: 20070707
  Serious: No
  Sender: FDA-Public Use
  Company Number: None

PATIENT
  Sex: Male
  Weight: 78.9259 kg

DRUGS (1)
  1. CELEXA [Suspect]
     Dosage: 20 MG 1 PO QD

REACTIONS (2)
  - DIARRHOEA [None]
  - STOMACH DISCOMFORT [None]
